FAERS Safety Report 17874993 (Version 1)
Quarter: 2020Q2

REPORT INFORMATION
  Report Type: Spontaneous
  Country: US (occurrence: US)
  Receive Date: 20200608
  Receipt Date: 20200608
  Transmission Date: 20200714
  Serious: Yes (Disabling)
  Sender: FDA-Public Use
  Company Number: None

PATIENT
  Age: 56 Year
  Sex: Male
  Weight: 96.3 kg

DRUGS (10)
  1. DULOXETINE, (GENERIC OF CYMBALTA) [Suspect]
     Active Substance: DULOXETINE
     Indication: ANXIETY
     Dosage: ?          QUANTITY:3 CAPSULE(S);?
     Route: 048
  2. CIALIS [Concomitant]
     Active Substance: TADALAFIL
  3. IBUPROFEN. [Concomitant]
     Active Substance: IBUPROFEN
  4. LOSARTAN. [Concomitant]
     Active Substance: LOSARTAN
  5. VICKS NYQUIL [Concomitant]
     Active Substance: ACETAMINOPHEN\DEXTROMETHORPHAN HYDROBROMIDE\DOXYLAMINE SUCCINATE
  6. TAMSULOSIN [Concomitant]
     Active Substance: TAMSULOSIN
  7. METHIMAZOLE. [Concomitant]
     Active Substance: METHIMAZOLE
  8. AVORVASTATIN [Concomitant]
  9. IMODIUM [Suspect]
     Active Substance: LOPERAMIDE HYDROCHLORIDE
  10. TRIMIX [Concomitant]

REACTIONS (3)
  - Withdrawal syndrome [None]
  - Fatigue [None]
  - Insomnia [None]
